FAERS Safety Report 8464103-7 (Version None)
Quarter: 2012Q2

REPORT INFORMATION
  Report Type: 
  Country: None (occurrence: None)
  Receive Date: 20120625
  Receipt Date: 20120620
  Transmission Date: 20120825
  Serious: Yes (Hospitalization, Other)
  Sender: FDA-Public Use
  Company Number: US-AMGEN-USASP2011025042

PATIENT
  Age: 47 Year
  Sex: Female
  Weight: 100.68 kg

DRUGS (10)
  1. LEUCOVORIN CALCIUM [Concomitant]
     Dosage: 10 MG, UNK
  2. FOLIC ACID [Concomitant]
     Dosage: 1 MG, UNK
  3. CALCIUM + VIT D [Concomitant]
     Dosage: UNK
  4. ENBREL [Suspect]
     Indication: RHEUMATOID ARTHRITIS
     Dosage: 50 MG, QWK
     Route: 058
     Dates: start: 20080401, end: 20110428
  5. LORATADINE [Concomitant]
     Dosage: 10 MG, UNK
  6. FLONASE [Concomitant]
     Dosage: 0.05 %, UNK
  7. METHOTREXATE [Concomitant]
     Dosage: 2.5 MG, UNK
  8. LIDODERM [Concomitant]
     Dosage: 5 %, UNK
  9. PULMICORT [Concomitant]
     Dosage: 200 MUG, UNK
  10. ALBUTEROL [Concomitant]
     Dosage: 90 MUG, UNK

REACTIONS (11)
  - MUSCULOSKELETAL PAIN [None]
  - SINUSITIS [None]
  - THERAPEUTIC RESPONSE DECREASED [None]
  - DRY MOUTH [None]
  - INGROWING NAIL [None]
  - TOOTH INFECTION [None]
  - BONE LESION [None]
  - HYPERTENSION [None]
  - ALVEOLAR OSTEITIS [None]
  - NEUROPATHY PERIPHERAL [None]
  - ARTHRALGIA [None]
